FAERS Safety Report 9965656 (Version 1)
Quarter: 2014Q1

REPORT INFORMATION
  Report Type: Report from Study
  Country: US (occurrence: US)
  Receive Date: 20140305
  Receipt Date: 20140305
  Transmission Date: 20141002
  Serious: No
  Sender: FDA-Public Use
  Company Number: US-ABBVIE-13P-163-1127233-00

PATIENT
  Age: 62 Year
  Sex: Female

DRUGS (8)
  1. HUMIRA [Suspect]
     Indication: RHEUMATOID ARTHRITIS
     Dates: start: 20130701
  2. NEURONTIN [Concomitant]
     Indication: NEURALGIA
  3. OMEPRAZOLE [Concomitant]
     Indication: DYSPEPSIA
  4. LEVOTHYROXINE [Concomitant]
     Indication: THYROID DISORDER
  5. TRICOR [Concomitant]
     Indication: BLOOD CHOLESTEROL
  6. ANAFRANIL [Concomitant]
     Dosage: 1-2 TABS ONCE DAILY
  7. HORMONES [Concomitant]
     Indication: HOT FLUSH
  8. HORMONES [Concomitant]
     Indication: PRODUCT USED FOR UNKNOWN INDICATION
     Route: 062

REACTIONS (4)
  - Injection site nodule [Unknown]
  - Injection site pain [Not Recovered/Not Resolved]
  - Device malfunction [Unknown]
  - Incorrect dose administered [Unknown]
